FAERS Safety Report 9275668 (Version 1)
Quarter: 2013Q2

REPORT INFORMATION
  Report Type: Spontaneous
  Country: FR (occurrence: FR)
  Receive Date: 20130507
  Receipt Date: 20130507
  Transmission Date: 20140414
  Serious: Yes (Hospitalization)
  Sender: FDA-Public Use
  Company Number: FR-SANOFI-AVENTIS-2013SA042686

PATIENT
  Age: 81 Year
  Sex: Male

DRUGS (4)
  1. KAYEXALATE [Suspect]
     Indication: HYPERKALAEMIA
     Dosage: FORM: POWDER FOR ORAL AND RECTAL SUSPENSION
     Route: 048
     Dates: start: 20121121, end: 20121228
  2. PREVISCAN [Suspect]
     Indication: THROMBOSIS PROPHYLAXIS
     Dosage: STRENGTH: 20 MG
     Route: 048
     Dates: start: 2004, end: 20121228
  3. PREVISCAN [Suspect]
     Indication: THROMBOSIS PROPHYLAXIS
     Route: 065
     Dates: start: 20130111
  4. CORTANCYL [Concomitant]

REACTIONS (1)
  - Pruritus [Not Recovered/Not Resolved]
